FAERS Safety Report 14928570 (Version 1)
Quarter: 2018Q2

REPORT INFORMATION
  Report Type: Spontaneous
  Country: DE (occurrence: DE)
  Receive Date: 20180523
  Receipt Date: 20180523
  Transmission Date: 20180711
  Serious: Yes (Other)
  Sender: FDA-Public Use
  Company Number: DE-BRISTOL-MYERS SQUIBB COMPANY-BMS-2018-045710

PATIENT
  Age: 81 Year
  Sex: Male
  Weight: 75 kg

DRUGS (4)
  1. CETIRIZIN [Concomitant]
     Active Substance: CETIRIZINE HYDROCHLORIDE
     Indication: PRODUCT USED FOR UNKNOWN INDICATION
     Dosage: 10 MG, UNK
     Route: 048
  2. YERVOY [Suspect]
     Active Substance: IPILIMUMAB
     Indication: MALIGNANT MELANOMA
     Dosage: 75 MG, UNK
     Route: 041
     Dates: start: 20180206, end: 20180410
  3. NIVOLUMAB BMS [Suspect]
     Active Substance: NIVOLUMAB
     Indication: MALIGNANT MELANOMA
     Route: 041
     Dates: start: 20180206, end: 20180410
  4. PANTOPRAZOL                        /01263201/ [Concomitant]
     Active Substance: PANTOPRAZOLE
     Indication: PRODUCT USED FOR UNKNOWN INDICATION
     Dosage: 20 MG, UNK
     Route: 048

REACTIONS (7)
  - Thyroxine free decreased [Not Recovered/Not Resolved]
  - Autoimmune thyroiditis [Not Recovered/Not Resolved]
  - Primary hypothyroidism [Not Recovered/Not Resolved]
  - Tri-iodothyronine free decreased [Not Recovered/Not Resolved]
  - Rash [Recovering/Resolving]
  - Blood thyroid stimulating hormone increased [Not Recovered/Not Resolved]
  - Pruritus [Recovering/Resolving]

NARRATIVE: CASE EVENT DATE: 201804
